FAERS Safety Report 9440261 (Version 1)
Quarter: 2013Q3

REPORT INFORMATION
  Report Type: Spontaneous
  Country: AR (occurrence: AR)
  Receive Date: 20130805
  Receipt Date: 20130805
  Transmission Date: 20140515
  Serious: Yes (Hospitalization)
  Sender: FDA-Public Use
  Company Number: PHHY2013AR082956

PATIENT
  Sex: Female

DRUGS (2)
  1. TRILEPTAL / GP 47680 / TRI 476B [Suspect]
     Indication: CEREBROVASCULAR ACCIDENT
     Dosage: UNK UKN, UNK
     Dates: start: 2006, end: 2011
  2. UNSPECIFIED INGREDIENT [Suspect]
     Dosage: UNK UKN, UNK

REACTIONS (3)
  - Pneumonia [Recovered/Resolved]
  - Pyrexia [Recovered/Resolved]
  - Localised infection [Unknown]
